FAERS Safety Report 9092946 (Version 1)
Quarter: 2013Q1

REPORT INFORMATION
  Report Type: Report from Study
  Country: US (occurrence: US)
  Receive Date: 20130218
  Receipt Date: 20130218
  Transmission Date: 20140127
  Serious: No
  Sender: FDA-Public Use
  Company Number: US-ABBOTT-12P-163-0976828-00

PATIENT
  Age: 61 Year
  Sex: Female

DRUGS (5)
  1. SIMCOR 500/20 [Suspect]
     Indication: HIGH DENSITY LIPOPROTEIN DECREASED
     Dosage: 500/20MG
     Dates: start: 20120830
  2. ASA [Concomitant]
     Indication: PRODUCT USED FOR UNKNOWN INDICATION
  3. BISOPROLOL [Concomitant]
     Indication: PRODUCT USED FOR UNKNOWN INDICATION
  4. HCT [Concomitant]
     Indication: PRODUCT USED FOR UNKNOWN INDICATION
     Dosage: 10MG/6.25MG
  5. UNKNOWN ALLERGY PILL [Concomitant]
     Indication: PRODUCT USED FOR UNKNOWN INDICATION
     Dosage: 10MG/6.25MG

REACTIONS (7)
  - Nausea [Recovered/Resolved]
  - Diarrhoea [Recovered/Resolved]
  - Pruritus generalised [Recovered/Resolved]
  - Generalised erythema [Recovered/Resolved]
  - Skin burning sensation [Recovered/Resolved]
  - Fatigue [Not Recovered/Not Resolved]
  - Asthenopia [Not Recovered/Not Resolved]
